FAERS Safety Report 14351800 (Version 2)
Quarter: 2018Q3

REPORT INFORMATION
  Report Type: Spontaneous
  Country: BE (occurrence: BE)
  Receive Date: 20180104
  Receipt Date: 20180827
  Transmission Date: 20181010
  Serious: Yes (Life-Threatening, Other)
  Sender: FDA-Public Use
  Company Number: PHHY2017BE197155

PATIENT
  Age: 76 Year
  Sex: Female

DRUGS (1)
  1. CEFTRIAXONE. [Suspect]
     Active Substance: CEFTRIAXONE
     Indication: LYME DISEASE
     Dosage: 4 G, TWICE A WEEK
     Route: 042

REACTIONS (4)
  - Acute kidney injury [Recovered/Resolved]
  - Haemolytic anaemia [Recovering/Resolving]
  - Diarrhoea [Unknown]
  - Nephropathy [Recovered/Resolved]
